FAERS Safety Report 5380355-4 (Version None)
Quarter: 2007Q3

REPORT INFORMATION
  Report Type: 
  Country: None (occurrence: None)
  Receive Date: 20070706
  Receipt Date: 20070521
  Transmission Date: 20080115
  Serious: No
  Sender: FDA-Public Use
  Company Number: A0652178A

PATIENT
  Age: 54 Year
  Sex: Female

DRUGS (4)
  1. TYKERB [Suspect]
     Indication: BREAST CANCER
     Dosage: 5TAB PER DAY
     Route: 048
     Dates: start: 20070424
  2. THYROID TAB [Concomitant]
  3. ANTI-CHOLESTEROL MEDICATION [Concomitant]
  4. VITAMIN CAP [Concomitant]

REACTIONS (2)
  - DIARRHOEA [None]
  - PYREXIA [None]
